FAERS Safety Report 14475196 (Version 1)
Quarter: 2018Q1

REPORT INFORMATION
  Report Type: Spontaneous
  Country: US (occurrence: US)
  Receive Date: 20180131
  Receipt Date: 20180131
  Transmission Date: 20180509
  Serious: No
  Sender: FDA-Public Use
  Company Number: None

PATIENT
  Age: 70 Year
  Sex: Female

DRUGS (3)
  1. ASMANEX [Suspect]
     Active Substance: MOMETASONE FUROATE
  2. XOPENEX [Suspect]
     Active Substance: LEVALBUTEROL HYDROCHLORIDE
  3. ALVESCO [Suspect]
     Active Substance: CICLESONIDE

REACTIONS (4)
  - Bronchospasm [None]
  - Treatment failure [None]
  - Dyspnoea [None]
  - Stomatitis [None]

NARRATIVE: CASE EVENT DATE: 20180128
